FAERS Safety Report 9761575 (Version 1)
Quarter: 2013Q4

REPORT INFORMATION
  Report Type: Spontaneous
  Country: IN (occurrence: IN)
  Receive Date: 20131216
  Receipt Date: 20131216
  Transmission Date: 20140711
  Serious: Yes (Hospitalization)
  Sender: FDA-Public Use
  Company Number: PHHY2013IN144573

PATIENT
  Age: 28 Year
  Sex: Female

DRUGS (9)
  1. PHENYTOIN [Suspect]
     Dosage: 300 MG AT NIGHT
  2. CEFEPIME [Suspect]
     Indication: URINARY TRACT INFECTION
     Dosage: 1 G, UNK
  3. CEFEPIME [Suspect]
     Indication: DRUG RESISTANCE
  4. CEFEPIME [Suspect]
     Indication: KLEBSIELLA INFECTION
  5. CEFEPIME [Suspect]
     Indication: ESCHERICHIA INFECTION
  6. TIGECYCLINE [Concomitant]
     Indication: ACINETOBACTER INFECTION
     Dosage: 50 MG, BID
  7. AMIKACIN [Concomitant]
     Indication: PLEURAL EFFUSION
     Dosage: 500 MG, UNK
  8. LEVETIRACETAM [Concomitant]
     Dosage: 500 MG, BID
  9. ETHAMBUTOL [Concomitant]
     Indication: PLEURAL EFFUSION
     Dosage: 800 MG, UNK

REACTIONS (20)
  - Stevens-Johnson syndrome [Recovered/Resolved]
  - Tinea versicolour [Recovered/Resolved]
  - Grand mal convulsion [Unknown]
  - Mouth ulceration [Recovered/Resolved]
  - Convulsion [Unknown]
  - Pruritus [Recovered/Resolved]
  - Rash generalised [Recovered/Resolved]
  - Rash erythematous [Recovered/Resolved]
  - Skin exfoliation [Recovered/Resolved]
  - Skin hyperpigmentation [Recovered/Resolved]
  - Pyrexia [Recovered/Resolved]
  - Skin lesion [Recovered/Resolved]
  - Chills [Recovered/Resolved]
  - Erythema [Recovered/Resolved]
  - Rash [Recovered/Resolved]
  - Dermatitis [Recovered/Resolved]
  - Face oedema [Recovered/Resolved]
  - Burning sensation [Recovered/Resolved]
  - Muscular weakness [Recovered/Resolved]
  - Vomiting [Recovered/Resolved]
